FAERS Safety Report 5673602-2 (Version None)
Quarter: 2008Q2

REPORT INFORMATION
  Report Type: 
  Country: None (occurrence: None)
  Receive Date: 20080225
  Receipt Date: 20071016
  Transmission Date: 20081010
  Serious: Yes (Disabling)
  Sender: FDA-Public Use
  Company Number: WAES 0710USA03292

PATIENT
  Age: 39 Year
  Sex: Female

DRUGS (4)
  1. ZOCOR [Suspect]
     Indication: BLOOD CHOLESTEROL INCREASED
     Dosage: 10 MG/DAILY/PO
     Route: 048
     Dates: start: 20050901, end: 20061101
  2. HYDRAZINE (HYDROCHLOROTHAZIDE) [Concomitant]
  3. SUDAFED 12 HOUR [Concomitant]
  4. ZYRTEC [Concomitant]

REACTIONS (4)
  - ALOPECIA [None]
  - ARTHRALGIA [None]
  - CONSTIPATION [None]
  - PRURITUS [None]
